FAERS Safety Report 25878190 (Version 1)
Quarter: 2025Q4

REPORT INFORMATION
  Report Type: Spontaneous
  Country: JP (occurrence: JP)
  Receive Date: 20251003
  Receipt Date: 20251003
  Transmission Date: 20260117
  Serious: Yes (Other)
  Sender: RANBAXY
  Company Number: JP-SUN PHARMACEUTICAL INDUSTRIES LTD-2025RR-529919

PATIENT
  Age: 62 Year
  Sex: Female

DRUGS (4)
  1. GEMCITABINE [Suspect]
     Active Substance: GEMCITABINE
     Indication: Malignant neoplasm of renal pelvis
     Dosage: 13 CYCLES
     Route: 065
  2. CARBOPLATIN [Suspect]
     Active Substance: CARBOPLATIN
     Indication: Malignant neoplasm of renal pelvis
     Dosage: UNK
  3. DOCETAXEL [Suspect]
     Active Substance: DOCETAXEL
     Indication: Malignant neoplasm of renal pelvis
     Dosage: 13 CYCLES
     Route: 065
  4. CISPLATIN [Suspect]
     Active Substance: CISPLATIN
     Indication: Malignant neoplasm of renal pelvis
     Dosage: 14 CYCLES

REACTIONS (1)
  - Neoplasm progression [Recovering/Resolving]
